FAERS Safety Report 10861212 (Version 2)
Quarter: 2018Q1

REPORT INFORMATION
  Report Type: Spontaneous
  Country: US (occurrence: US)
  Receive Date: 20150224
  Receipt Date: 20180117
  Transmission Date: 20180508
  Serious: Yes (Other)
  Sender: FDA-Public Use
  Company Number: US-CIPLA LTD.-2015US01310

PATIENT

DRUGS (6)
  1. ETOPOSIDE. [Suspect]
     Active Substance: ETOPOSIDE
     Indication: SYNOVIAL SARCOMA
     Dosage: 100 MG/M2/DAY FOR 5 DAYS
     Route: 065
  2. IFOSFAMIDE. [Suspect]
     Active Substance: IFOSFAMIDE
     Indication: SYNOVIAL SARCOMA
     Dosage: 3 G/M2/DAY FOR 3 DAYS, 2 CYCLES
     Route: 065
  3. DOXORUBICIN [Suspect]
     Active Substance: DOXORUBICIN
     Indication: SYNOVIAL SARCOMA
     Dosage: 37.5 MG/M2/DAY FOR 2 DAYS, 2 CYCLES
     Route: 065
  4. GEMCITABINE [Suspect]
     Active Substance: GEMCITABINE\GEMCITABINE HYDROCHLORIDE
     Indication: SYNOVIAL SARCOMA
     Dosage: 900 MG/M2, ON DAYS 1 AND 8, GIVEN FOR 2 CYCLES AT 21 AND 28 DAYS
     Route: 065
  5. DOCETAXEL. [Suspect]
     Active Substance: DOCETAXEL
     Indication: SYNOVIAL SARCOMA
     Dosage: 100 MG/M2, ON DAY 8 FOR 2 CYCLES AT 21 AND 28 DAYS
     Route: 065
  6. IFOSFAMIDE. [Suspect]
     Active Substance: IFOSFAMIDE
     Dosage: 1.8 G/M2/DAY, FOR 5 DAYS
     Route: 065

REACTIONS (4)
  - Compartment syndrome [Recovered/Resolved]
  - Myositis [Recovering/Resolving]
  - Drug ineffective [Unknown]
  - Recall phenomenon [Recovering/Resolving]
